FAERS Safety Report 8814891 (Version 1)
Quarter: 2012Q4

REPORT INFORMATION
  Report Type: 
  Country: JP (occurrence: JP)
  Receive Date: 20120928
  Receipt Date: 20120928
  Transmission Date: 20130627
  Serious: Yes (Other)
  Sender: FDA-Public Use
  Company Number: JP-SANOFI-AVENTIS-2012SA070306

PATIENT
  Sex: Male

DRUGS (4)
  1. PREDNISOLONE [Suspect]
     Indication: PROSTATE CANCER
     Dosage: day 1-21, daily dose -10 mg
     Route: 048
  2. DOCETAXEL [Suspect]
     Indication: PROSTATE CANCER
     Dosage: 35 mg/m2 as 30 min iv infusion on day 2 and 9, repeated every 21 days.
     Route: 042
  3. ESTRAMUSTINE [Suspect]
     Indication: PROSTATE CANCER
     Dosage: 560 mg, day 1-5, days 8-12
     Route: 048
  4. DEXAMETHASONE [Concomitant]
     Indication: PREMEDICATION
     Route: 042

REACTIONS (1)
  - Cardiovascular disorder [Unknown]
